FAERS Safety Report 7903236-8 (Version None)
Quarter: 2011Q4

REPORT INFORMATION
  Report Type: 
  Country: None (occurrence: None)
  Receive Date: 20111107
  Receipt Date: 20111028
  Transmission Date: 20120403
  Serious: Yes (Death)
  Sender: FDA-Public Use
  Company Number: DSA_47423_2011

PATIENT
  Sex: Female

DRUGS (4)
  1. CITALOPRAM HYDROBROMIDE [Concomitant]
  2. DIAZEPAM [Concomitant]
  3. HALDOL [Concomitant]
  4. XENAZINE [Suspect]
     Indication: HUNTINGTON'S DISEASE
     Dosage: (25 MG 6X/DAY ORAL) ; (37.5 MG TID ORAL)
     Route: 048
     Dates: start: 20110729

REACTIONS (3)
  - SEDATION [None]
  - HYPERSOMNIA [None]
  - HYPOPHAGIA [None]
